FAERS Safety Report 5484493-7 (Version None)
Quarter: 2007Q4

REPORT INFORMATION
  Report Type: 
  Country: None (occurrence: None)
  Receive Date: 20071010
  Receipt Date: 20070924
  Transmission Date: 20080405
  Serious: Yes (Hospitalization)
  Sender: FDA-Public Use
  Company Number: 2007BI018165

PATIENT
  Age: 45 Year
  Sex: Female
  Weight: 67 kg

DRUGS (5)
  1. AVONEX [Suspect]
     Indication: MULTIPLE SCLEROSIS
     Dosage: QW;IM, QW;IM, QW;IM
     Route: 030
     Dates: start: 20040301, end: 20070721
  2. AVONEX [Suspect]
     Indication: MULTIPLE SCLEROSIS
     Dosage: QW;IM, QW;IM, QW;IM
     Route: 030
     Dates: start: 20070805
  3. AVONEX [Suspect]
     Indication: MULTIPLE SCLEROSIS
     Dosage: QW;IM, QW;IM, QW;IM
     Route: 030
     Dates: start: 20070903
  4. BETASERON [Concomitant]
  5. ANTI-INFLAMMATORY [Concomitant]

REACTIONS (6)
  - INFLUENZA [None]
  - MYALGIA [None]
  - NAUSEA [None]
  - PNEUMONIA [None]
  - PYREXIA [None]
  - RHINITIS [None]
